FAERS Safety Report 8441532 (Version 4)
Quarter: 2012Q4

REPORT INFORMATION
  Report Type: 
  Country: US (occurrence: US)
  Receive Date: 20120305
  Receipt Date: 20121204
  Transmission Date: 20130627
  Serious: Yes (Other)
  Sender: FDA-Public Use
  Company Number: US-PFIZER INC-2012053049

PATIENT
  Age: 37 Year
  Sex: Female
  Weight: 57 kg

DRUGS (6)
  1. PREMARIN [Suspect]
     Indication: HORMONE REPLACEMENT THERAPY
     Dosage: 2.5 mg, daily
     Route: 048
     Dates: start: 1976
  2. PREMARIN [Suspect]
     Indication: HOT FLASHES
     Dosage: 1.25 mg, 1x/day
     Route: 048
  3. PREMARIN [Suspect]
     Indication: BONE LOSS
     Dosage: 0.625 mg, daily
     Dates: end: 2011
  4. PREMARIN [Suspect]
     Indication: SKIN DISCOLOURATION
  5. LISINOPRIL [Concomitant]
     Indication: BLOOD PRESSURE HIGH
     Dosage: UNK
  6. HYDROCHLOROTHIAZIDE [Concomitant]
     Indication: BLOOD PRESSURE HIGH
     Dosage: UNK

REACTIONS (4)
  - Arthropathy [Unknown]
  - Osteoporosis [Not Recovered/Not Resolved]
  - Body height decreased [Unknown]
  - Drug ineffective [Unknown]
